FAERS Safety Report 12454262 (Version 1)
Quarter: 2016Q2

REPORT INFORMATION
  Report Type: Spontaneous
  Country: GB (occurrence: GB)
  Receive Date: 20160610
  Receipt Date: 20160610
  Transmission Date: 20160815
  Serious: Yes (Other)
  Sender: FDA-Public Use
  Company Number: GB-ROCHE-1772263

PATIENT
  Age: 18 Year
  Sex: Female

DRUGS (1)
  1. BEVACIZUMAB [Suspect]
     Active Substance: BEVACIZUMAB
     Indication: STEVENS-JOHNSON SYNDROME
     Dosage: 1.25 % (1.25 MG/ML) SALINE WATER?IN BOTH EYES
     Route: 061

REACTIONS (1)
  - Corneal erosion [Recovered/Resolved]
